FAERS Safety Report 16064297 (Version 2)
Quarter: 2019Q2

REPORT INFORMATION
  Report Type: Spontaneous
  Country: JP (occurrence: JP)
  Receive Date: 20190312
  Receipt Date: 20190405
  Transmission Date: 20190711
  Serious: Yes (Disabling)
  Sender: FDA-Public Use
  Company Number: JP-UCBSA-2019009537

PATIENT
  Age: 60 Year
  Sex: Male

DRUGS (13)
  1. DEPAKENE-R [Suspect]
     Active Substance: VALPROATE SODIUM
     Indication: PRODUCT USED FOR UNKNOWN INDICATION
     Dosage: 400 MG, 2X/DAY (BID)
     Route: 048
  2. DEPAKENE-R [Suspect]
     Active Substance: VALPROATE SODIUM
     Dosage: UNK
     Route: 048
  3. COCARL [Suspect]
     Active Substance: ACETAMINOPHEN
     Indication: PRODUCT USED FOR UNKNOWN INDICATION
     Dosage: 3DF 1 TAB
     Route: 048
  4. URSODEOXYCHOLIC ACID [Suspect]
     Active Substance: URSODIOL
     Indication: PRODUCT USED FOR UNKNOWN INDICATION
     Dosage: 200 MG, 3X/DAY (TID)
     Route: 048
  5. LANSOPRAZOLE. [Suspect]
     Active Substance: LANSOPRAZOLE
     Indication: PRODUCT USED FOR UNKNOWN INDICATION
     Dosage: 15MG DAILY
     Route: 048
  6. DEPAKENE-R [Suspect]
     Active Substance: VALPROATE SODIUM
     Dosage: UNK
     Route: 048
  7. E KEPPRA [Suspect]
     Active Substance: LEVETIRACETAM
     Indication: SEIZURE PROPHYLAXIS
     Dosage: 1000 MG DAILY
     Route: 048
     Dates: start: 20181211, end: 20181213
  8. BISOPROLOL FUMARATE. [Suspect]
     Active Substance: BISOPROLOL FUMARATE
     Indication: PRODUCT USED FOR UNKNOWN INDICATION
     Dosage: 0.625MG DAILY
     Route: 048
  9. ROZEREM [Suspect]
     Active Substance: RAMELTEON
     Indication: PRODUCT USED FOR UNKNOWN INDICATION
     Dosage: 8MG 1 TAB
     Route: 048
  10. E KEPPRA [Suspect]
     Active Substance: LEVETIRACETAM
     Indication: SEIZURE PROPHYLAXIS
     Dosage: 1500 MG DAILY
     Route: 041
     Dates: start: 20181207, end: 20181207
  11. E KEPPRA [Suspect]
     Active Substance: LEVETIRACETAM
     Indication: OFF LABEL USE
     Dosage: 1000MG DAILY
     Route: 041
     Dates: start: 20181208, end: 20181211
  12. E KEPPRA [Suspect]
     Active Substance: LEVETIRACETAM
     Indication: OFF LABEL USE
     Dosage: 750MG DAILY
     Route: 048
     Dates: start: 20181214, end: 20181217
  13. DEPAKENE-R [Suspect]
     Active Substance: VALPROATE SODIUM
     Dosage: UNK
     Route: 048

REACTIONS (3)
  - Renal impairment [Recovered/Resolved]
  - Eosinophil count increased [Not Recovered/Not Resolved]
  - Off label use [Unknown]

NARRATIVE: CASE EVENT DATE: 20181207
